FAERS Safety Report 15133169 (Version 2)
Quarter: 2018Q3

REPORT INFORMATION
  Report Type: Report from Study
  Country: None (occurrence: US)
  Receive Date: 20180712
  Receipt Date: 20180824
  Transmission Date: 20181010
  Serious: Yes (Hospitalization)
  Sender: FDA-Public Use
  Company Number: US-ABBVIE-18K-163-2416093-00

PATIENT
  Age: 72 Year
  Sex: Female
  Weight: 83.08 kg

DRUGS (2)
  1. HUMIRA [Suspect]
     Active Substance: ADALIMUMAB
     Indication: PSORIASIS
     Route: 058
     Dates: start: 201804
  2. POTASSIUM [Concomitant]
     Active Substance: POTASSIUM
     Indication: BLOOD POTASSIUM DECREASED

REACTIONS (4)
  - Coma [Recovered/Resolved]
  - Restless legs syndrome [Unknown]
  - Product label issue [Unknown]
  - Accidental overdose [Recovered/Resolved]

NARRATIVE: CASE EVENT DATE: 20180609
